FAERS Safety Report 25561584 (Version 1)
Quarter: 2025Q3

REPORT INFORMATION
  Report Type: Spontaneous
  Country: US (occurrence: US)
  Receive Date: 20250716
  Receipt Date: 20250716
  Transmission Date: 20251021
  Serious: No
  Sender: NOVO NORDISK
  Company Number: US-NOVOPROD-1352226

PATIENT
  Age: 55 Year
  Sex: Female

DRUGS (2)
  1. OZEMPIC [Suspect]
     Active Substance: SEMAGLUTIDE
     Indication: Type 2 diabetes mellitus
     Dosage: 2MG WEEKLY
     Route: 058
  2. NovoFine Plus (32G) [Concomitant]
     Indication: Device therapy
     Route: 058

REACTIONS (1)
  - Corrective lens user [Unknown]

NARRATIVE: CASE EVENT DATE: 20240701
